FAERS Safety Report 4770808-1 (Version None)
Quarter: 2005Q3

REPORT INFORMATION
  Report Type: 
  Country: None (occurrence: None)
  Receive Date: 20050914
  Receipt Date: 20050914
  Transmission Date: 20060218
  Serious: Yes (Disabling)
  Sender: FDA-Public Use
  Company Number: None

PATIENT
  Age: 68 Year
  Sex: Male
  Weight: 97.0698 kg

DRUGS (1)
  1. LEVITRA [Suspect]
     Dosage: 20 MG    PO
     Route: 048

REACTIONS (2)
  - BLINDNESS [None]
  - OPTIC NEURITIS [None]
